FAERS Safety Report 7469286-3 (Version None)
Quarter: 2011Q2

REPORT INFORMATION
  Report Type: 
  Country: None (occurrence: None)
  Receive Date: 20110510
  Receipt Date: 20110505
  Transmission Date: 20111010
  Serious: Yes (Other)
  Sender: FDA-Public Use
  Company Number: US-PFIZER INC-2011097074

PATIENT
  Sex: Female
  Weight: 100.68 kg

DRUGS (10)
  1. XALATAN [Suspect]
     Indication: GLAUCOMA
     Dosage: 1 GTT IN EACH EYE, 1X/DAY
     Route: 047
     Dates: start: 20110101
  2. NEURONTIN [Concomitant]
     Indication: BACK PAIN
     Dosage: UNK
  3. IBUPROFEN [Concomitant]
     Dosage: UNK
  4. GLUCOTROL [Concomitant]
     Indication: DIABETES MELLITUS
     Dosage: UNK
  5. NASACORT [Concomitant]
     Indication: SINUS DISORDER
     Dosage: UNK
  6. ALLEGRA [Concomitant]
     Indication: FOOD ALLERGY
  7. NEXIUM [Concomitant]
     Indication: DYSPEPSIA
     Dosage: UNK
  8. ALLEGRA [Concomitant]
     Indication: IODINE ALLERGY
     Dosage: UNK
  9. LIPITOR [Concomitant]
     Indication: BLOOD CHOLESTEROL INCREASED
     Dosage: UNK
  10. VISTARIL [Concomitant]
     Indication: SLEEP DISORDER
     Dosage: UNK

REACTIONS (7)
  - HORDEOLUM [None]
  - OCULAR HYPERAEMIA [None]
  - EYE IRRITATION [None]
  - EYE OEDEMA [None]
  - LACRIMATION INCREASED [None]
  - EYE DISORDER [None]
  - DRY EYE [None]
